FAERS Safety Report 16570941 (Version 1)
Quarter: 2019Q3

REPORT INFORMATION
  Report Type: Spontaneous
  Country: US (occurrence: US)
  Receive Date: 20190715
  Receipt Date: 20190715
  Transmission Date: 20191004
  Serious: Yes (Other)
  Sender: FDA-Public Use
  Company Number: US-PFIZER INC-2019294563

PATIENT
  Age: 54 Year
  Sex: Female
  Weight: 73.48 kg

DRUGS (1)
  1. LYRICA [Suspect]
     Active Substance: PREGABALIN
     Indication: NERVE INJURY
     Dosage: 150 MG, 3X/DAY

REACTIONS (12)
  - Renal failure [Recovered/Resolved]
  - Sepsis [Unknown]
  - Ammonia abnormal [Unknown]
  - Insomnia [Unknown]
  - Blood pressure decreased [Unknown]
  - Product dose omission [Unknown]
  - Pain in extremity [Unknown]
  - Thyroid hormones increased [Unknown]
  - Burning sensation [Unknown]
  - Gait disturbance [Unknown]
  - Peripheral swelling [Unknown]
  - Weight increased [Unknown]
